FAERS Safety Report 5260768-1 (Version None)
Quarter: 2007Q1

REPORT INFORMATION
  Report Type: 
  Country: None (occurrence: None)
  Receive Date: 20070309
  Receipt Date: 20070227
  Transmission Date: 20070707
  Serious: Yes (Death, Disabling)
  Sender: FDA-Public Use
  Company Number: US-MERCK-0703USA00755

PATIENT
  Age: 62 Year
  Sex: Female

DRUGS (3)
  1. VORICONAZOLE [Concomitant]
     Route: 048
  2. CANCIDAS [Suspect]
     Route: 065
  3. AMPHOTERICIN B [Concomitant]
     Route: 065

REACTIONS (5)
  - ABDOMINAL DISCOMFORT [None]
  - BLOOD ALKALINE PHOSPHATASE INCREASED [None]
  - LEUKAEMIA RECURRENT [None]
  - NAUSEA [None]
  - VOMITING [None]
